FAERS Safety Report 18685403 (Version 3)
Quarter: 2021Q1

REPORT INFORMATION
  Report Type: Spontaneous
  Country: JP (occurrence: JP)
  Receive Date: 20201231
  Receipt Date: 20210127
  Transmission Date: 20210419
  Serious: Yes (Hospitalization)
  Sender: FDA-Public Use
  Company Number: JP-AMGEN-JPNSP2020211740

PATIENT
  Age: 87 Year
  Sex: Female
  Weight: 36 kg

DRUGS (5)
  1. REBAMIPIDE [Concomitant]
     Active Substance: REBAMIPIDE
     Indication: SPINAL COMPRESSION FRACTURE
     Dosage: 100 MG, TID
     Route: 048
     Dates: start: 20190218
  2. PRALIA [Suspect]
     Active Substance: DENOSUMAB
     Indication: OSTEOPOROSIS
     Dosage: 60 MG, ONCE EVERY 6 MO
     Route: 058
     Dates: start: 20141107, end: 20191120
  3. LOXOPROFEN [Concomitant]
     Active Substance: LOXOPROFEN
     Indication: SPINAL COMPRESSION FRACTURE
     Dosage: 100 MG, AS NEEDED
     Dates: start: 20170501
  4. LOQOA [Concomitant]
     Indication: SPINAL COMPRESSION FRACTURE
     Dosage: (10X14)2DF/DAY
     Dates: start: 20170501
  5. LOXOPROFEN [Concomitant]
     Active Substance: LOXOPROFEN
     Dosage: 60 MG, TID
     Route: 048
     Dates: start: 20190218

REACTIONS (2)
  - Spinal compression fracture [Recovering/Resolving]
  - Bone density decreased [Not Recovered/Not Resolved]

NARRATIVE: CASE EVENT DATE: 202012
